FAERS Safety Report 5178720-3 (Version None)
Quarter: 2006Q4

REPORT INFORMATION
  Report Type: 
  Country: None (occurrence: None)
  Receive Date: 20061218
  Receipt Date: 20060811
  Transmission Date: 20070319
  Serious: No
  Sender: FDA-Public Use
  Company Number: US-AMGEN-KDL189859

PATIENT
  Sex: Female

DRUGS (2)
  1. ENBREL [Suspect]
     Indication: PSORIATIC ARTHROPATHY
     Route: 058
     Dates: start: 20060721
  2. ENBREL [Suspect]
     Indication: PSORIASIS

REACTIONS (7)
  - ABDOMINAL PAIN LOWER [None]
  - DIZZINESS [None]
  - HEADACHE [None]
  - INJECTION SITE REACTION [None]
  - NASAL DISCOMFORT [None]
  - SINUS CONGESTION [None]
  - THROAT IRRITATION [None]
